FAERS Safety Report 22585352 (Version 1)
Quarter: 2023Q2

REPORT INFORMATION
  Report Type: Spontaneous
  Country: PT (occurrence: PT)
  Receive Date: 20230610
  Receipt Date: 20230610
  Transmission Date: 20230722
  Serious: Yes (Other)
  Sender: FDA-Public Use
  Company Number: PT-ROCHE-3355163

PATIENT
  Age: 43 Year
  Sex: Female

DRUGS (2)
  1. TRASTUZUMAB [Suspect]
     Active Substance: TRASTUZUMAB
     Indication: HER2 positive breast cancer
     Dosage: 1.8 MILLIGRAM/KILOGRAM, Q21D
     Route: 065
     Dates: start: 20180219
  2. PERTUZUMAB [Suspect]
     Active Substance: PERTUZUMAB
     Indication: HER2 positive breast cancer
     Dosage: 1.84 MILLIGRAM, Q21D
     Route: 065
     Dates: start: 20180219

REACTIONS (5)
  - Disease progression [Unknown]
  - Fluid retention [Unknown]
  - Haematotoxicity [Unknown]
  - Vomiting [Unknown]
  - Nausea [Unknown]
